FAERS Safety Report 16326124 (Version 1)
Quarter: 2019Q2

REPORT INFORMATION
  Report Type: Spontaneous
  Country: US (occurrence: US)
  Receive Date: 20190517
  Receipt Date: 20190517
  Transmission Date: 20190711
  Serious: No
  Sender: FDA-Public Use
  Company Number: US-AMAG PHARMACEUTICALS, INC.-AMAG201902793

PATIENT
  Sex: Female
  Weight: 56.3 kg

DRUGS (1)
  1. INTRAROSA [Suspect]
     Active Substance: PRASTERONE
     Indication: ATROPHIC VULVOVAGINITIS
     Dosage: QPM
     Route: 067
     Dates: start: 2019

REACTIONS (3)
  - Vaginal discharge [Not Recovered/Not Resolved]
  - Off label use [Unknown]
  - Bladder prolapse [Not Recovered/Not Resolved]

NARRATIVE: CASE EVENT DATE: 2019
